FAERS Safety Report 8444077-5 (Version None)
Quarter: 2012Q2

REPORT INFORMATION
  Report Type: 
  Country: None (occurrence: None)
  Receive Date: 20120618
  Receipt Date: 20120614
  Transmission Date: 20120825
  Serious: Yes (Hospitalization, Other)
  Sender: FDA-Public Use
  Company Number: PHEH2012US010115

PATIENT
  Sex: Female
  Weight: 66.4 kg

DRUGS (11)
  1. NAPROXEN (ALEVE) [Concomitant]
     Dosage: UNK UKN, PRN
     Dates: start: 20110913
  2. AZELASTINE HCL [Concomitant]
     Dosage: UNK UKN, PRN
     Route: 047
     Dates: start: 20101130
  3. COPAXONE [Concomitant]
     Dosage: 20 MG SUB Q KIT
     Route: 058
     Dates: start: 20120224
  4. ZOLPIDEM [Concomitant]
     Dosage: 5 MG, UNK
  5. SULFAMETHOXAZOLE AND TRIMETHOPRIM [Concomitant]
     Route: 048
  6. MECLIZINE [Concomitant]
     Dosage: 25 MG, TID
     Route: 048
     Dates: start: 20120224
  7. DIAZEPAM [Concomitant]
     Dosage: 1 DF, BID
     Route: 048
     Dates: start: 20120426
  8. GILENYA [Suspect]
     Indication: MULTIPLE SCLEROSIS
     Dosage: 0.5 MG, QD
     Route: 048
     Dates: start: 20120410
  9. AZELASTINE HCL [Concomitant]
     Dosage: UNK UKN, QHS IN LEFT EYE
     Route: 047
     Dates: start: 20120301
  10. GABAPENTIN [Concomitant]
     Dosage: 300 MG, UNK
     Dates: start: 20120221
  11. ESCITALOPRAM [Concomitant]
     Dosage: 10 MG, QD
     Route: 048
     Dates: start: 20120426

REACTIONS (4)
  - NAUSEA [None]
  - CENTRAL NERVOUS SYSTEM LESION [None]
  - MULTIPLE SCLEROSIS RELAPSE [None]
  - VOMITING [None]
